FAERS Safety Report 11740979 (Version 1)
Quarter: 2015Q4

REPORT INFORMATION
  Report Type: Spontaneous
  Country: FR (occurrence: FR)
  Receive Date: 20151115
  Receipt Date: 20151115
  Transmission Date: 20160304
  Serious: Yes (Hospitalization)
  Sender: FDA-Public Use
  Company Number: FR-EMD SERONO-8052148

PATIENT
  Age: 31 Year
  Sex: Female

DRUGS (3)
  1. OVITRELLE [Suspect]
     Active Substance: CHORIOGONADOTROPIN ALFA
     Indication: IN VITRO FERTILISATION
     Dosage: 250 MICROGRAMS/0.5 ML, SOLUTION FOR INJECTION IN A PRE-FILLED SYRINGE
     Route: 058
     Dates: start: 20141022
  2. FOSTIMON [Suspect]
     Active Substance: UROFOLLITROPIN
     Indication: IN VITRO FERTILISATION
     Dosage: 150 IU/ML, POWDER AND SOLVENT FOR SOLUTION FOR INJECTION IN A PRE-FILLED SYRINGE
     Route: 058
     Dates: start: 20141009, end: 20141021
  3. DECAPEPTYL [Suspect]
     Active Substance: TRIPTORELIN ACETATE
     Indication: IN VITRO FERTILISATION
     Dosage: 3 MG, POWDER AND SOLVENT FOR SUSPENSION FOR INJECTION (IM) EXTENDED-RELEASE FORM DURING 28 DAYS
     Route: 030
     Dates: start: 201410

REACTIONS (3)
  - Dyspnoea [Recovered/Resolved]
  - Ovarian hyperstimulation syndrome [Recovered/Resolved]
  - Ascites [Recovered/Resolved]

NARRATIVE: CASE EVENT DATE: 20141110
